FAERS Safety Report 11383859 (Version 3)
Quarter: 2015Q3

REPORT INFORMATION
  Report Type: Spontaneous
  Country: JP (occurrence: JP)
  Receive Date: 20150814
  Receipt Date: 20150831
  Transmission Date: 20151125
  Serious: Yes (Hospitalization, Other)
  Sender: FDA-Public Use
  Company Number: JP-B.I. PHARMACEUTICALS,INC./RIDGEFIELD-2015-BI-43993NB

PATIENT

DRUGS (1)
  1. PRADAXA [Suspect]
     Active Substance: DABIGATRAN ETEXILATE MESYLATE
     Indication: THROMBOSIS PROPHYLAXIS
     Route: 065
     Dates: start: 2014

REACTIONS (10)
  - Seizure [Unknown]
  - Abdominal pain upper [Unknown]
  - Nephrotic syndrome [Unknown]
  - Nausea [Unknown]
  - Oedema peripheral [Unknown]
  - Muscle spasms [Unknown]
  - Off label use [Unknown]
  - Peripheral swelling [Unknown]
  - Renal disorder [Unknown]
  - Dizziness [Unknown]
